FAERS Safety Report 9396127 (Version 1)
Quarter: 2013Q3

REPORT INFORMATION
  Report Type: Spontaneous
  Country: US (occurrence: US)
  Receive Date: 20130711
  Receipt Date: 20130711
  Transmission Date: 20140515
  Serious: Yes (Hospitalization)
  Sender: FDA-Public Use
  Company Number: US-ELI_LILLY_AND_COMPANY-US201307000331

PATIENT
  Sex: Female

DRUGS (14)
  1. EFFIENT [Suspect]
     Indication: CORONARY ARTERY DISEASE
     Dosage: 10 MG, QD
     Route: 065
  2. EFFIENT [Suspect]
     Indication: MYOCARDIAL INFARCTION
  3. EFFIENT [Suspect]
     Indication: STENT PLACEMENT
  4. METFORMIN [Concomitant]
     Indication: DIABETES MELLITUS
     Dosage: 1000 MG, BID
  5. LEVETIRACETAM [Concomitant]
     Indication: CONVULSION
     Dosage: 750 MG, QD
  6. GLIPIZIDE ER [Concomitant]
     Indication: DIABETES MELLITUS
     Dosage: 10 MG, QD
  7. PROTONIX [Concomitant]
     Indication: GASTROOESOPHAGEAL REFLUX DISEASE
     Dosage: 40 MG, QD
  8. IMDUR [Concomitant]
     Indication: CHEST PAIN
     Dosage: 60 MG, QD
  9. CARVEDILOL [Concomitant]
     Indication: CARDIAC DISORDER
     Dosage: 12.5 MG, BID
  10. MAG DELAY [Concomitant]
     Dosage: 64 MG, QD
  11. ASPIRIN [Concomitant]
     Dosage: 81 MG, QD
  12. NITROGLYCERIN [Concomitant]
     Indication: CHEST PAIN
     Dosage: 0.2 MG, QD
  13. ZOCOR [Concomitant]
     Dosage: 40 MG, QD
  14. ZETIA [Concomitant]
     Dosage: 10 MG, QD

REACTIONS (3)
  - Cerebrovascular accident [Recovering/Resolving]
  - Convulsion [Recovering/Resolving]
  - Contusion [Unknown]
